FAERS Safety Report 7480019-7 (Version None)
Quarter: 2011Q2

REPORT INFORMATION
  Report Type: 
  Country: None (occurrence: None)
  Receive Date: 20110516
  Receipt Date: 20110506
  Transmission Date: 20111010
  Serious: No
  Sender: FDA-Public Use
  Company Number: US-BIOGENIDEC-2010BI014667

PATIENT
  Age: 36 Year
  Sex: Female

DRUGS (1)
  1. TYSABRI [Suspect]
     Indication: MULTIPLE SCLEROSIS
     Route: 042
     Dates: start: 20080423

REACTIONS (14)
  - MOTION SICKNESS [None]
  - FEELING ABNORMAL [None]
  - POOR VENOUS ACCESS [None]
  - GAIT DISTURBANCE [None]
  - RASH [None]
  - ABDOMINAL DISCOMFORT [None]
  - HYPOAESTHESIA FACIAL [None]
  - MULTIPLE SCLEROSIS RELAPSE [None]
  - HYPOAESTHESIA [None]
  - COGNITIVE DISORDER [None]
  - DYSPHEMIA [None]
  - FATIGUE [None]
  - MIGRAINE [None]
  - ASTHENIA [None]
